FAERS Safety Report 10305104 (Version 1)
Quarter: 2014Q3

REPORT INFORMATION
  Report Type: Spontaneous
  Country: FR (occurrence: FR)
  Receive Date: 20140715
  Receipt Date: 20140715
  Transmission Date: 20150326
  Serious: Yes (Death)
  Sender: FDA-Public Use
  Company Number: FR-SA-2014SA088996

PATIENT
  Sex: Male
  Weight: .45 kg

DRUGS (2)
  1. CLOMID [Suspect]
     Active Substance: CLOMIPHENE CITRATE
     Indication: MATERNAL EXPOSURE TIMING UNSPECIFIED
     Route: 064
     Dates: start: 20080625
  2. CLOMID [Suspect]
     Active Substance: CLOMIPHENE CITRATE
     Indication: MATERNAL EXPOSURE TIMING UNSPECIFIED
     Route: 064
     Dates: start: 20080529

REACTIONS (3)
  - Umbilical cord abnormality [Fatal]
  - Foetal exposure during pregnancy [Fatal]
  - Foetal growth restriction [Fatal]

NARRATIVE: CASE EVENT DATE: 20090108
